FAERS Safety Report 22530599 (Version 4)
Quarter: 2025Q1

REPORT INFORMATION
  Report Type: Report from Study
  Country: CA (occurrence: CA)
  Receive Date: 20230607
  Receipt Date: 20250206
  Transmission Date: 20250409
  Serious: Yes (Other)
  Sender: TAKEDA
  Company Number: CA-TAKEDA-2020TUS013796

PATIENT
  Age: 73 Year
  Sex: Female

DRUGS (21)
  1. VEDOLIZUMAB [Suspect]
     Active Substance: VEDOLIZUMAB
     Indication: Crohn^s disease
  2. VEDOLIZUMAB [Suspect]
     Active Substance: VEDOLIZUMAB
  3. VEDOLIZUMAB [Suspect]
     Active Substance: VEDOLIZUMAB
     Dosage: 300 MILLIGRAM, Q4WEEKS
     Dates: start: 20201117
  4. VEDOLIZUMAB [Suspect]
     Active Substance: VEDOLIZUMAB
     Dosage: 300 MILLIGRAM, Q4WEEKS
  5. VEDOLIZUMAB [Suspect]
     Active Substance: VEDOLIZUMAB
     Dosage: 300 MILLIGRAM, Q4WEEKS
  6. VEDOLIZUMAB [Suspect]
     Active Substance: VEDOLIZUMAB
     Dosage: 300 MILLIGRAM, Q4WEEKS
  7. VEDOLIZUMAB [Suspect]
     Active Substance: VEDOLIZUMAB
     Dosage: 300 MILLIGRAM, Q4WEEKS
  8. VEDOLIZUMAB [Suspect]
     Active Substance: VEDOLIZUMAB
     Dosage: 300 MILLIGRAM, Q4WEEKS
  9. MAGNESIUM [Concomitant]
     Active Substance: MAGNESIUM
  10. TYLENOL ARTHRITIS PAIN [Concomitant]
     Active Substance: ACETAMINOPHEN
     Dosage: UNK UNK, TID
  11. TYLENOL ARTHRITIS PAIN [Concomitant]
     Active Substance: ACETAMINOPHEN
  12. IRON [Concomitant]
     Active Substance: IRON
  13. ASPIRIN [Concomitant]
     Active Substance: ASPIRIN
  14. ASPIRIN [Concomitant]
     Active Substance: ASPIRIN
  15. PANTOPRAZOLE [Concomitant]
     Active Substance: PANTOPRAZOLE
  16. NAPROXEN [Concomitant]
     Active Substance: NAPROXEN
  17. VITAMIN B12 [Concomitant]
     Active Substance: CYANOCOBALAMIN
  18. FERROUS GLUCONATE [Concomitant]
     Active Substance: FERROUS GLUCONATE
  19. GLUCOSAMINE [Concomitant]
     Active Substance: GLUCOSAMINE
  20. VENLAFAXINE [Concomitant]
     Active Substance: VENLAFAXINE HYDROCHLORIDE
  21. VITAMIN D [Concomitant]
     Active Substance: VITAMIN D NOS

REACTIONS (11)
  - Asthenia [Unknown]
  - Diarrhoea [Unknown]
  - Female genital tract fistula [Unknown]
  - Pyrexia [Unknown]
  - Nausea [Unknown]
  - Frequent bowel movements [Recovered/Resolved]
  - Malaise [Unknown]
  - Rash pruritic [Unknown]
  - Off label use [Unknown]
  - Constipation [Recovered/Resolved]
  - Rash [Unknown]

NARRATIVE: CASE EVENT DATE: 20200819
